FAERS Safety Report 21658206 (Version 1)
Quarter: 2022Q4

REPORT INFORMATION
  Report Type: Spontaneous
  Country: US (occurrence: None)
  Receive Date: 20221128
  Receipt Date: 20221128
  Transmission Date: 20230112
  Serious: Yes (Hospitalization)
  Sender: FDA-Public Use
  Company Number: None

PATIENT
  Age: 26 Year
  Sex: Female
  Weight: 50.4 kg

DRUGS (2)
  1. SCOPOLAMINE [Suspect]
     Active Substance: SCOPOLAMINE
     Indication: Procedural nausea
     Dates: start: 20221121, end: 20221122
  2. Apri birth control [Concomitant]

REACTIONS (5)
  - Mydriasis [None]
  - Dizziness [None]
  - Hypotension [None]
  - Memory impairment [None]
  - Speech disorder [None]

NARRATIVE: CASE EVENT DATE: 20221123
